FAERS Safety Report 9468800 (Version 1)
Quarter: 2013Q3

REPORT INFORMATION
  Report Type: Spontaneous
  Country: US (occurrence: None)
  Receive Date: 20130814
  Receipt Date: 20130814
  Transmission Date: 20140515
  Serious: Yes (Hospitalization)
  Sender: FDA-Public Use
  Company Number: 150275

PATIENT
  Age: 54 Year
  Sex: Male
  Weight: 88.45 kg

DRUGS (1)
  1. ACETYLCYSTEINE [Suspect]
     Indication: CATHETERISATION CARDIAC
     Dates: start: 20130801

REACTIONS (3)
  - Dizziness [None]
  - Dyspnoea [None]
  - Respiratory arrest [None]
